FAERS Safety Report 4333695-1 (Version None)
Quarter: 2004Q2

REPORT INFORMATION
  Report Type: 
  Country: None (occurrence: None)
  Receive Date: 20040406
  Receipt Date: 20040406
  Transmission Date: 20050107
  Serious: Yes (Hospitalization)
  Sender: FDA-Public Use
  Company Number: None

PATIENT
  Age: 41 Year
  Sex: Male
  Weight: 77 kg

DRUGS (4)
  1. LAMICTAL [Suspect]
     Indication: POST HERPETIC NEURALGIA
     Dosage: 50 MG PO DAILY
     Route: 048
  2. LORTAB [Concomitant]
  3. ULTRAM [Concomitant]
  4. ELAVIL [Concomitant]

REACTIONS (7)
  - ASPARTATE AMINOTRANSFERASE INCREASED [None]
  - DIARRHOEA [None]
  - LUNG INFILTRATION [None]
  - MALAISE [None]
  - MOUTH ULCERATION [None]
  - PYREXIA [None]
  - RASH [None]
